FAERS Safety Report 4781633-X (Version None)
Quarter: 2005Q3

REPORT INFORMATION
  Report Type: 
  Country: None (occurrence: None)
  Receive Date: 20050928
  Receipt Date: 20050916
  Transmission Date: 20060218
  Serious: Yes (Hospitalization)
  Sender: FDA-Public Use
  Company Number: CH-BRISTOL-MYERS SQUIBB COMPANY-13118054

PATIENT
  Age: 77 Year
  Sex: Male

DRUGS (8)
  1. GLUCOPHAGE [Suspect]
  2. DIAMOX [Suspect]
     Indication: MACULAR OEDEMA
     Dates: start: 20050612
  3. BLOPRESS [Suspect]
  4. TORSEMIDE [Suspect]
  5. SINTROM [Concomitant]
  6. LESCOL [Concomitant]
  7. LOPRESSOR [Concomitant]
  8. STARLIX [Concomitant]

REACTIONS (2)
  - METABOLIC ACIDOSIS [None]
  - RENAL FAILURE CHRONIC [None]
